FAERS Safety Report 12013508 (Version 2)
Quarter: 2016Q1

REPORT INFORMATION
  Report Type: Spontaneous
  Country: US (occurrence: US)
  Receive Date: 20160205
  Receipt Date: 20160212
  Transmission Date: 20160526
  Serious: Yes (Other)
  Sender: FDA-Public Use
  Company Number: US-PFIZER INC-2016067603

PATIENT
  Sex: Male

DRUGS (1)
  1. LYRICA [Suspect]
     Active Substance: PREGABALIN
     Dosage: UNK

REACTIONS (9)
  - Withdrawal syndrome [Unknown]
  - Pain [Unknown]
  - Screaming [Unknown]
  - Gait disturbance [Unknown]
  - Suicidal ideation [Unknown]
  - Decreased appetite [Unknown]
  - Seizure [Unknown]
  - Depression [Unknown]
  - Dissociation [Unknown]
